FAERS Safety Report 23649643 (Version 1)
Quarter: 2024Q1

REPORT INFORMATION
  Report Type: Spontaneous
  Country: CN (occurrence: CN)
  Receive Date: 20240319
  Receipt Date: 20240319
  Transmission Date: 20240409
  Serious: Yes (Other)
  Sender: FDA-Public Use
  Company Number: CN-PFIZER INC-202400066192

PATIENT
  Age: 55 Year
  Sex: Male
  Weight: 60 kg

DRUGS (3)
  1. TIGECYCLINE [Suspect]
     Active Substance: TIGECYCLINE
     Indication: Psittacosis
     Dosage: 100 MG, 1X/DAY(ON DAY 1)
     Route: 041
     Dates: start: 20230413
  2. TIGECYCLINE [Suspect]
     Active Substance: TIGECYCLINE
     Dosage: 50 MG, 2X/DAY(ON DAYS 2-12)
     Route: 041
     Dates: start: 20230414, end: 20230425
  3. AZITHROMYCIN [Suspect]
     Active Substance: AZITHROMYCIN
     Indication: Psittacosis
     Dosage: 0.5 G, 1X/DAY(ON DAYS 1-14)
     Route: 041
     Dates: start: 20230413, end: 20230426

REACTIONS (4)
  - Lipase increased [Recovered/Resolved]
  - Amylase increased [Recovered/Resolved]
  - Off label use [Unknown]
  - Drug effective for unapproved indication [Unknown]

NARRATIVE: CASE EVENT DATE: 20230413
